FAERS Safety Report 14128156 (Version 1)
Quarter: 2017Q4

REPORT INFORMATION
  Report Type: Spontaneous
  Country: US (occurrence: None)
  Receive Date: 20171025
  Receipt Date: 20171025
  Transmission Date: 20180321
  Serious: No
  Sender: FDA-Public Use
  Company Number: None

PATIENT
  Age: 59 Year
  Sex: Female
  Weight: 67.13 kg

DRUGS (1)
  1. SOOLANTRA [Suspect]
     Active Substance: IVERMECTIN
     Indication: ROSACEA
     Dates: start: 20170601, end: 20171025

REACTIONS (1)
  - Burning mouth syndrome [None]

NARRATIVE: CASE EVENT DATE: 20171002
